FAERS Safety Report 9149811 (Version 1)
Quarter: 2013Q1

REPORT INFORMATION
  Report Type: Spontaneous
  Country: US (occurrence: None)
  Receive Date: 20130228
  Receipt Date: 20130228
  Transmission Date: 20140127
  Serious: Yes (Life-Threatening, Hospitalization)
  Sender: FDA-Public Use
  Company Number: None

PATIENT
  Age: 86 Year
  Sex: Male
  Weight: 78.93 kg

DRUGS (1)
  1. TAMSULOSIN (FLOMAX) [Suspect]
     Indication: URINARY RETENTION
     Dates: start: 20121003

REACTIONS (8)
  - Loss of consciousness [None]
  - Dizziness [None]
  - Dizziness [None]
  - Nasal congestion [None]
  - Facial bones fracture [None]
  - Facial bones fracture [None]
  - Asthenia [None]
  - Gait disturbance [None]
